FAERS Safety Report 7570111-0 (Version None)
Quarter: 2011Q2

REPORT INFORMATION
  Report Type: 
  Country: None (occurrence: None)
  Receive Date: 20110624
  Receipt Date: 20110610
  Transmission Date: 20111010
  Serious: Yes (Death, Hospitalization)
  Sender: FDA-Public Use
  Company Number: CA-JNJFOC-20100907190

PATIENT
  Sex: Female
  Weight: 145.5 kg

DRUGS (1)
  1. REMICADE [Suspect]
     Indication: RHEUMATOID ARTHRITIS
     Route: 042
     Dates: start: 20100708, end: 20100722

REACTIONS (7)
  - ANAEMIA [None]
  - IMMUNOSUPPRESSION [None]
  - RHEUMATOID ARTHRITIS [None]
  - SEPTIC SHOCK [None]
  - ADRENAL INSUFFICIENCY [None]
  - MULTIPLE MYELOMA [None]
  - SPLENIC RUPTURE [None]
